FAERS Safety Report 8764550 (Version 1)
Quarter: 2012Q4

REPORT INFORMATION
  Report Type: 
  Country: TR (occurrence: TR)
  Receive Date: 20120831
  Receipt Date: 20120831
  Transmission Date: 20130627
  Serious: Yes (Hospitalization, Other)
  Sender: FDA-Public Use
  Company Number: TR-BAXTER-2012BAX015694

PATIENT
  Sex: Female

DRUGS (4)
  1. KIOVIG 10G/100ML IV INF?ZYON I?IN ??ZELTI I?EREN FLAKON [Suspect]
     Indication: DRUG EXPOSURE VIA MOTHER
     Dosage: 0.3G/KG
     Route: 064
  2. KIOVIG 10G/100ML IV INF?ZYON I?IN ??ZELTI I?EREN FLAKON [Suspect]
     Indication: OFF LABEL USE
     Dosage: 0.7 g/kg
     Route: 064
  3. PREDNISOLONE [Suspect]
     Indication: DRUG EXPOSURE VIA MOTHER
     Route: 064
  4. CYCLOSPORINE [Suspect]
     Indication: DRUG EXPOSURE VIA MOTHER
     Route: 064

REACTIONS (6)
  - Foetal exposure during pregnancy [Recovered/Resolved]
  - Intraventricular haemorrhage [Recovered/Resolved]
  - Sepsis neonatal [Recovered/Resolved]
  - Premature baby [Recovered/Resolved]
  - Off label use [None]
  - Maternal drugs affecting foetus [None]
